FAERS Safety Report 4479093-1 (Version None)
Quarter: 2004Q4

REPORT INFORMATION
  Report Type: 
  Country: None (occurrence: None)
  Receive Date: 20040923
  Receipt Date: 20040610
  Transmission Date: 20050328
  Serious: No
  Sender: FDA-Public Use
  Company Number: 207131

PATIENT
  Age: 85 Year
  Sex: Male

DRUGS (16)
  1. AVASTIN [Suspect]
     Indication: COLORECTAL CANCER METASTATIC
     Dosage: 5 MG/KG, Q2W, INTRAVENOUS
     Route: 042
     Dates: start: 20040323
  2. CAMPTOSAR [Concomitant]
  3. LOVENOX [Concomitant]
  4. DIGOXIN [Concomitant]
  5. COUMADIN [Concomitant]
  6. LASIX [Concomitant]
  7. ATENOLOL [Concomitant]
  8. VIOXX [Concomitant]
  9. PLAQUENIL [Concomitant]
  10. POTASSIUM (POTASSIUM NOS) [Concomitant]
  11. PROSCAR [Concomitant]
  12. ELAVIL [Concomitant]
  13. AMBIEN [Concomitant]
  14. XALATAN [Concomitant]
  15. MAG OXIDE (MAGNESIUM OXIDE) [Concomitant]
  16. NTG (NITROGLYCERIN) [Concomitant]

REACTIONS (1)
  - HAEMATURIA [None]
